FAERS Safety Report 7156815-2 (Version None)
Quarter: 2010Q4

REPORT INFORMATION
  Report Type: 
  Country: None (occurrence: None)
  Receive Date: 20101214
  Receipt Date: 20101207
  Transmission Date: 20110411
  Serious: Yes (Hospitalization)
  Sender: FDA-Public Use
  Company Number: TW-PFIZER INC-2010165601

PATIENT
  Age: 77 Year
  Sex: Male

DRUGS (1)
  1. DILANTIN [Suspect]
     Indication: CONVULSION
     Dosage: 100 MG, 2X/DAY
     Route: 048
     Dates: start: 20020101

REACTIONS (6)
  - BLISTER [None]
  - CEREBRAL AMYLOID ANGIOPATHY [None]
  - GINGIVAL BLEEDING [None]
  - HAEMATURIA [None]
  - HAEMORRHAGIC STROKE [None]
  - RASH [None]
